FAERS Safety Report 10576708 (Version 2)
Quarter: 2014Q4

REPORT INFORMATION
  Report Type: Spontaneous
  Country: GR (occurrence: GR)
  Receive Date: 20141111
  Receipt Date: 20141217
  Transmission Date: 20150529
  Serious: Yes (Hospitalization, Other)
  Sender: FDA-Public Use
  Company Number: GR-JNJFOC-20141102855

PATIENT
  Age: 32 Year
  Sex: Male

DRUGS (9)
  1. XARELTO [Suspect]
     Active Substance: RIVAROXABAN
     Indication: THROMBOSIS PROPHYLAXIS
     Route: 048
     Dates: start: 201310, end: 20141013
  2. XARELTO [Suspect]
     Active Substance: RIVAROXABAN
     Indication: EMBOLISM VENOUS
     Route: 048
     Dates: start: 20141022, end: 20141027
  3. XARELTO [Suspect]
     Active Substance: RIVAROXABAN
     Indication: THROMBOSIS PROPHYLAXIS
     Route: 048
     Dates: start: 20141022, end: 20141027
  4. ZINADOL [Concomitant]
     Active Substance: CEFUROXIME AXETIL
     Indication: INFECTION PROPHYLAXIS
     Route: 065
     Dates: start: 20141015
  5. ADALAT [Suspect]
     Active Substance: NIFEDIPINE
     Indication: ARTERIAL SPASM
     Route: 048
     Dates: start: 20141015
  6. CIPROXIN NOS [Concomitant]
     Indication: PYREXIA
     Route: 065
     Dates: start: 20141029
  7. PLAVIX [Concomitant]
     Active Substance: CLOPIDOGREL BISULFATE
     Indication: THROMBOSIS
     Route: 065
     Dates: start: 20141022, end: 20141027
  8. XARELTO [Suspect]
     Active Substance: RIVAROXABAN
     Indication: EMBOLISM VENOUS
     Route: 048
     Dates: start: 201310, end: 20141013
  9. XEFO [Concomitant]
     Active Substance: LORNOXICAM
     Indication: ANALGESIC THERAPY
     Route: 065
     Dates: start: 20141015

REACTIONS (4)
  - Abdominal pain [Unknown]
  - Off label use [Unknown]
  - Off label use [Unknown]
  - Acute kidney injury [Recovered/Resolved]

NARRATIVE: CASE EVENT DATE: 201310
